FAERS Safety Report 6490766-1 (Version None)
Quarter: 2009Q4

REPORT INFORMATION
  Report Type: 
  Country: None (occurrence: None)
  Receive Date: 20091208
  Receipt Date: 20091202
  Transmission Date: 20100525
  Serious: Yes (Other)
  Sender: FDA-Public Use
  Company Number: 1000010519

PATIENT
  Age: 22 Year
  Sex: Male

DRUGS (1)
  1. LEXAPRO [Suspect]
     Dosage: ORAL
     Route: 048

REACTIONS (5)
  - CONCUSSION [None]
  - EYE MOVEMENT DISORDER [None]
  - HEAD INJURY [None]
  - NECK INJURY [None]
  - SPORTS INJURY [None]
